FAERS Safety Report 7275718-6 (Version None)
Quarter: 2011Q1

REPORT INFORMATION
  Report Type: 
  Country: None (occurrence: None)
  Receive Date: 20110204
  Receipt Date: 20110127
  Transmission Date: 20110831
  Serious: Yes (Death)
  Sender: FDA-Public Use
  Company Number: US-GENENTECH-313043

PATIENT
  Sex: Female
  Weight: 44.2 kg

DRUGS (2)
  1. RITUXIMAB [Suspect]
     Dosage: 1000 MG, UNK
     Route: 042
     Dates: start: 20090911
  2. RITUXIMAB [Suspect]
     Indication: RHEUMATOID ARTHRITIS
     Dosage: 800 MG, UNK
     Route: 042
     Dates: start: 20070726, end: 20090101

REACTIONS (1)
  - DEATH [None]
